FAERS Safety Report 4727206-6 (Version None)
Quarter: 2005Q3

REPORT INFORMATION
  Report Type: 
  Country: None (occurrence: None)
  Receive Date: 20050728
  Receipt Date: 20050628
  Transmission Date: 20060218
  Serious: Yes (Hospitalization)
  Sender: FDA-Public Use
  Company Number: ES-BOEHRINGER INGELHEIM PHARMACEUTICALS, INC.-2005-DE-02507GD

PATIENT
  Age: 73 Year
  Sex: Female

DRUGS (5)
  1. PERSANTIN AMPULE [Suspect]
     Indication: CARDIAC STRESS TEST
     Dosage: 0.84 MG/KG
  2. VASODILATORS [Concomitant]
     Indication: CORONARY ARTERY DISEASE
  3. BETA-BLOCKERS [Concomitant]
     Indication: HYPERTENSION
  4. STATINS [Concomitant]
     Indication: HYPERCHOLESTEROLAEMIA
  5. TC-TETROFOSMIN [Concomitant]
     Indication: CARDIAC STRESS TEST

REACTIONS (3)
  - ARTERIOSPASM CORONARY [None]
  - CHEST PAIN [None]
  - ELECTROCARDIOGRAM ST SEGMENT ELEVATION [None]
